FAERS Safety Report 17608186 (Version 2)
Quarter: 2020Q2

REPORT INFORMATION
  Report Type: Report from Study
  Country: BR (occurrence: BR)
  Receive Date: 20200331
  Receipt Date: 20200408
  Transmission Date: 20200713
  Serious: Yes (Life-Threatening, Hospitalization, Other)
  Sender: FDA-Public Use
  Company Number: BR-BRISTOL-MYERS SQUIBB COMPANY-BMS-2020-026505

PATIENT
  Age: 74 Year
  Sex: Male

DRUGS (3)
  1. NIVOLUMAB [Suspect]
     Active Substance: NIVOLUMAB
     Indication: METASTATIC RENAL CELL CARCINOMA
     Dosage: 360 MILLIGRAM, Q3WK
     Route: 042
     Dates: start: 20200226
  2. BEMPEGALDESLEUKIN [Suspect]
     Active Substance: BEMPEGALDESLEUKIN
     Indication: METASTATIC RENAL CELL CARCINOMA
     Dosage: 0.34 MILLIGRAM, Q3WK
     Route: 042
     Dates: start: 20200326
  3. MORPHINE [Concomitant]
     Active Substance: MORPHINE
     Indication: FLANK PAIN
     Dosage: 10 MILLIGRAM, 6/6 HS
     Route: 048
     Dates: start: 20200326

REACTIONS (2)
  - Pneumonia [Not Recovered/Not Resolved]
  - Hypoglycaemia [Recovering/Resolving]

NARRATIVE: CASE EVENT DATE: 20200325
